FAERS Safety Report 18851425 (Version 2)
Quarter: 2022Q3

REPORT INFORMATION
  Report Type: Report from Study
  Country: AU (occurrence: AU)
  Receive Date: 20210205
  Receipt Date: 20220720
  Transmission Date: 20221026
  Serious: Yes (Hospitalization, Other)
  Sender: FDA-Public Use
  Company Number: AU-NOVARTISPH-NVSC2020AU322709

PATIENT
  Age: 74 Year
  Sex: Male
  Weight: 67.4 kg

DRUGS (43)
  1. TISAGENLECLEUCEL [Suspect]
     Active Substance: TISAGENLECLEUCEL
     Indication: Mantle cell lymphoma
     Dosage: 1.57 10E6/KG
     Route: 048
     Dates: start: 20210127
  2. IBRUTINIB [Suspect]
     Active Substance: IBRUTINIB
     Indication: Mantle cell lymphoma
     Dosage: 560 MG, OD
     Route: 048
     Dates: start: 20201119
  3. CYCLOPHOSPHAMIDE [Suspect]
     Active Substance: CYCLOPHOSPHAMIDE
     Indication: Product used for unknown indication
     Dosage: 430 MG
     Route: 065
     Dates: start: 20210122
  4. FLUDARABINE [Suspect]
     Active Substance: FLUDARABINE PHOSPHATE
     Indication: Product used for unknown indication
     Dosage: 43 MG
     Route: 065
     Dates: start: 20210122
  5. ALLOPURINOL [Concomitant]
     Active Substance: ALLOPURINOL
     Indication: Prophylaxis
     Dosage: 300 MG, OD
     Route: 048
     Dates: start: 20201121
  6. DOCUSATE SODIUM\SENNOSIDE A\SENNOSIDE B [Concomitant]
     Active Substance: DOCUSATE SODIUM\SENNOSIDE A\SENNOSIDE B
     Indication: Constipation
     Dosage: 8MG+50MG BD
     Route: 048
     Dates: start: 20201112, end: 20201119
  7. DOCUSATE SODIUM\SENNOSIDE A\SENNOSIDE B [Concomitant]
     Active Substance: DOCUSATE SODIUM\SENNOSIDE A\SENNOSIDE B
     Dosage: 50/8 MG OD
     Route: 048
     Dates: start: 20201119
  8. ONDANSETRON [Concomitant]
     Active Substance: ONDANSETRON
     Indication: Prophylaxis of nausea and vomiting
     Dosage: 8 MG, PRN
     Route: 042
     Dates: start: 20201125, end: 20201216
  9. PIPERACILLIN AND TAZOBACTAM [Concomitant]
     Active Substance: PIPERACILLIN SODIUM\TAZOBACTAM SODIUM
     Indication: Urinary tract infection
     Dosage: 4G/0.5 G 8QH
     Route: 042
     Dates: start: 20201128, end: 20201201
  10. SULFAMETHOXAZOLE AND TRIMETHOPRIM [Concomitant]
     Active Substance: SULFAMETHOXAZOLE\TRIMETHOPRIM
     Indication: Antibiotic prophylaxis
     Dosage: 40/200 MG OD
     Route: 048
     Dates: start: 20201124
  11. NALOXONE HYDROCHLORIDE\OXYCODONE HYDROCHLORIDE [Concomitant]
     Active Substance: NALOXONE HYDROCHLORIDE\OXYCODONE HYDROCHLORIDE
     Indication: Procedural pain
     Dosage: 10/5 MG BD
     Route: 048
     Dates: start: 20201112, end: 20201216
  12. THIAMINE [Concomitant]
     Active Substance: THIAMINE
     Indication: Vitamin B1
     Dosage: 100 MG, TDS
     Route: 048
     Dates: start: 20201120
  13. VALACYCLOVIR HYDROCHLORIDE [Concomitant]
     Active Substance: VALACYCLOVIR HYDROCHLORIDE
     Indication: Prophylaxis
     Dosage: 500 MG, OD
     Route: 048
     Dates: start: 2018, end: 20201118
  14. VALACYCLOVIR HYDROCHLORIDE [Concomitant]
     Active Substance: VALACYCLOVIR HYDROCHLORIDE
     Dosage: 500 MG BD
     Route: 048
     Dates: start: 20201119
  15. MAGNESIUM SULFATE [Concomitant]
     Active Substance: MAGNESIUM SULFATE
     Indication: Electrolyte substitution therapy
     Dosage: 20 MMOL, STAT
     Route: 042
     Dates: start: 20201128, end: 20201129
  16. MAGNESIUM SULFATE [Concomitant]
     Active Substance: MAGNESIUM SULFATE
     Dosage: 800 MG QD
     Route: 048
     Dates: start: 20201201
  17. MAGNESIUM SULFATE [Concomitant]
     Active Substance: MAGNESIUM SULFATE
     Dosage: 2 CAPSULES, QD
     Route: 048
     Dates: start: 20201210
  18. GENTAMICIN [Concomitant]
     Active Substance: GENTAMICIN
     Indication: Urinary tract infection
     Dosage: 320 MG, STAT
     Route: 042
     Dates: start: 20201128, end: 20201128
  19. SULFAMETHOXAZOLE\TRIMETHOPRIM [Concomitant]
     Active Substance: SULFAMETHOXAZOLE\TRIMETHOPRIM
     Indication: Prophylaxis
     Dosage: 80/400MG, OD
     Route: 048
     Dates: start: 2018, end: 20201123
  20. ALBUTEROL [Concomitant]
     Active Substance: ALBUTEROL
     Indication: Asthma
     Dosage: 100 UG, PRN
     Route: 055
  21. OXYCODONE HYDROCHLORIDE [Concomitant]
     Active Substance: OXYCODONE HYDROCHLORIDE
     Indication: Pain
     Dosage: 5 MG, PRN
     Route: 048
     Dates: start: 2019
  22. ACETAMINOPHEN [Concomitant]
     Active Substance: ACETAMINOPHEN
     Indication: Pain
     Dosage: 1000 MG, PRN
     Route: 048
     Dates: start: 2019
  23. ACETAMINOPHEN [Concomitant]
     Active Substance: ACETAMINOPHEN
     Indication: Pyrexia
     Dosage: 1 G, PRN
     Route: 048
     Dates: start: 20210129
  24. IBUPROFEN [Concomitant]
     Active Substance: IBUPROFEN
     Indication: Pain
     Dosage: 400 MG, PRN
     Route: 048
     Dates: start: 2019
  25. TEMAZEPAM [Concomitant]
     Active Substance: TEMAZEPAM
     Indication: Insomnia
     Dosage: 10 MG, PRN
     Route: 048
     Dates: start: 2019
  26. POTASSIUM CHLORIDE [Concomitant]
     Active Substance: POTASSIUM CHLORIDE
     Indication: Hypokalaemia
     Dosage: 600 MG, BID
     Route: 048
     Dates: start: 20201119, end: 20201203
  27. METOCLOPRAMIDE [Concomitant]
     Active Substance: METOCLOPRAMIDE
     Indication: Prophylaxis
     Dosage: 10 MG, TDS
     Route: 048
     Dates: start: 20201129, end: 20201216
  28. METOCLOPRAMIDE [Concomitant]
     Active Substance: METOCLOPRAMIDE
     Dosage: 10 MG, PRN
     Route: 048
     Dates: start: 20210121
  29. AMOXICILLIN\CLAVULANIC ACID [Concomitant]
     Active Substance: AMOXICILLIN\CLAVULANIC ACID
     Indication: Urinary tract infection
     Dosage: 875/125MG, BD
     Route: 048
     Dates: start: 20201201, end: 20201207
  30. NETUPITANT\PALONOSETRON [Concomitant]
     Active Substance: NETUPITANT\PALONOSETRON
     Indication: Prophylaxis
     Dosage: 300MG/500MCG STAT
     Route: 048
     Dates: start: 20201201, end: 20201201
  31. TAMSULOSIN [Concomitant]
     Active Substance: TAMSULOSIN
     Indication: Prostatomegaly
     Dosage: 400MCG, OD
     Route: 048
     Dates: start: 20201203
  32. RASBURICASE [Concomitant]
     Active Substance: RASBURICASE
     Indication: Prophylaxis
     Dosage: 6 MG, STAT
     Route: 042
     Dates: start: 20201201, end: 20201201
  33. FILGRASTIM [Concomitant]
     Active Substance: FILGRASTIM
     Indication: Neutropenia
     Dosage: 300MCG, DAILY
     Route: 058
     Dates: start: 20201112, end: 20201116
  34. AUGMENTIN [Concomitant]
     Active Substance: AMOXICILLIN\CLAVULANATE POTASSIUM
     Indication: Infection
     Dosage: 1 G, BD
     Route: 048
     Dates: start: 20201213
  35. AUGMENTIN [Concomitant]
     Active Substance: AMOXICILLIN\CLAVULANATE POTASSIUM
     Indication: Neutrophil count decreased
     Dosage: 875/125 G, BD
     Route: 048
     Dates: start: 20210104, end: 20210114
  36. AUGMENTIN [Concomitant]
     Active Substance: AMOXICILLIN\CLAVULANATE POTASSIUM
     Indication: Lower respiratory tract infection
  37. MIRTAZAPINE [Concomitant]
     Active Substance: MIRTAZAPINE
     Indication: Depressed mood
     Dosage: 15 MG, OD
     Route: 048
     Dates: start: 20201211
  38. MIRTAZAPINE [Concomitant]
     Active Substance: MIRTAZAPINE
     Indication: Depression
  39. SODIUM BICARBONATE [Concomitant]
     Active Substance: SODIUM BICARBONATE
     Indication: Mucosal inflammation
     Dosage: 15 G 4 TIMES/DAY
     Route: 048
     Dates: start: 20201210
  40. FLUTICASONE [Concomitant]
     Active Substance: FLUTICASONE
     Indication: Asthma
     Dosage: 250MCG/25MCG PRN
     Route: 055
  41. VITAMINS [Concomitant]
     Active Substance: VITAMINS
     Indication: Nutritional supplementation
     Dosage: 1 TABLET, OD
     Route: 048
     Dates: start: 20201120
  42. BACTRIM [Concomitant]
     Active Substance: SULFAMETHOXAZOLE\TRIMETHOPRIM
     Indication: Prophylaxis
     Dosage: 40/200MG OD
     Route: 048
     Dates: start: 20201124
  43. POLYETHYLENE GLYCOLS [Concomitant]
     Active Substance: POLYETHYLENE GLYCOLS
     Indication: Constipation
     Dosage: 17 G, BD
     Route: 048
     Dates: start: 20201210

REACTIONS (5)
  - Neurotoxicity [Not Recovered/Not Resolved]
  - Cytokine release syndrome [Not Recovered/Not Resolved]
  - Atrial fibrillation [Recovering/Resolving]
  - Neutrophil count decreased [Recovered/Resolved]
  - Immune effector cell-associated neurotoxicity syndrome [Recovered/Resolved]

NARRATIVE: CASE EVENT DATE: 20201128
